FAERS Safety Report 9539337 (Version 1)
Quarter: 2013Q3

REPORT INFORMATION
  Report Type: Spontaneous
  Country: CH (occurrence: None)
  Receive Date: 20130917
  Receipt Date: 20130917
  Transmission Date: 20140515
  Serious: Yes (Other)
  Sender: FDA-Public Use
  Company Number: 7236183

PATIENT
  Age: 42 Year
  Sex: Female

DRUGS (2)
  1. EUTHYROX [Suspect]
     Indication: HYPOTHYROIDISM
     Dosage: 75 MCG (75 MCG.
     Route: 048
     Dates: start: 20121211
  2. PANTOPRAZOLE [Suspect]
     Indication: DYSPEPSIA
     Route: 048
     Dates: start: 20121017

REACTIONS (4)
  - Pemphigus [None]
  - Skin atrophy [None]
  - Pemphigoid [None]
  - Hypothyroidism [None]
